FAERS Safety Report 9829819 (Version 1)
Quarter: 2014Q1

REPORT INFORMATION
  Report Type: Report from Study
  Country: CL (occurrence: CL)
  Receive Date: 20140120
  Receipt Date: 20140120
  Transmission Date: 20141002
  Serious: Yes (Other)
  Sender: FDA-Public Use
  Company Number: CL-ROCHE-1334834

PATIENT
  Age: 74 Year
  Sex: Female
  Weight: 57 kg

DRUGS (3)
  1. XELODA [Suspect]
     Indication: COLON CANCER
     Dosage: 14-DAY-CYCLE
     Route: 048
     Dates: start: 20130614, end: 20131126
  2. PROPANOLOL [Concomitant]
     Indication: ARRHYTHMIA
     Route: 048
  3. METFORMIN HYDROCHLORIDE [Concomitant]
     Indication: INSULIN RESISTANCE
     Route: 048

REACTIONS (2)
  - Colon adenoma [Not Recovered/Not Resolved]
  - Carcinoembryonic antigen increased [Not Recovered/Not Resolved]
